FAERS Safety Report 15798137 (Version 1)
Quarter: 2019Q1

REPORT INFORMATION
  Report Type: Spontaneous
  Country: US (occurrence: US)
  Receive Date: 20190108
  Receipt Date: 20190108
  Transmission Date: 20190417
  Serious: Yes (Hospitalization)
  Sender: FDA-Public Use
  Company Number: US-APOTEX-2018AP028684

PATIENT
  Age: 52 Year
  Sex: Male

DRUGS (13)
  1. FLUOXETINE [Suspect]
     Active Substance: FLUOXETINE HYDROCHLORIDE
     Indication: ANTIDEPRESSANT THERAPY
     Dosage: 20 MG, DAILY
     Route: 065
  2. FLUCONAZOLE. [Interacting]
     Active Substance: FLUCONAZOLE
     Indication: ONYCHOMYCOSIS
     Dosage: 200 MG, WEEKLY
     Route: 065
  3. CLONAZEPAM. [Concomitant]
     Active Substance: CLONAZEPAM
     Dosage: 0.5 MG, Q.H.S.
     Route: 065
  4. CLONAZEPAM. [Concomitant]
     Active Substance: CLONAZEPAM
     Dosage: 0.25 MG, Q.H.S.
     Route: 065
  5. CLONAZEPAM. [Concomitant]
     Active Substance: CLONAZEPAM
     Indication: PRODUCT USED FOR UNKNOWN INDICATION
     Dosage: 0.5 MG, BID
     Route: 065
  6. OLANZAPINE. [Concomitant]
     Active Substance: OLANZAPINE
     Indication: PRODUCT USED FOR UNKNOWN INDICATION
     Dosage: 7.5 MG, Q.H.S.
     Route: 065
  7. LISDEXAMFETAMINE [Suspect]
     Active Substance: LISDEXAMFETAMINE
     Indication: CENTRAL NERVOUS SYSTEM STIMULATION
     Dosage: UNK, UNKNOWN
     Route: 065
  8. FLUOXETINE [Interacting]
     Active Substance: FLUOXETINE HYDROCHLORIDE
     Dosage: 40 MG, DAILY
     Route: 065
  9. LISDEXAMFETAMINE [Suspect]
     Active Substance: LISDEXAMFETAMINE
     Dosage: 40 MG, DAILY
     Route: 065
  10. MELATONIN [Suspect]
     Active Substance: MELATONIN
     Indication: INSOMNIA
     Dosage: 5 MG, Q.H.S.
     Route: 048
  11. FLUOXETINE [Interacting]
     Active Substance: FLUOXETINE HYDROCHLORIDE
     Dosage: 60 MG, DAILY
     Route: 065
  12. FLUOXETINE [Interacting]
     Active Substance: FLUOXETINE HYDROCHLORIDE
     Dosage: 20 MG, DAILY
     Route: 065
  13. OLANZAPINE. [Concomitant]
     Active Substance: OLANZAPINE
     Dosage: 10 MG, Q.H.S.
     Route: 065

REACTIONS (3)
  - Choreoathetosis [Recovering/Resolving]
  - Condition aggravated [Recovering/Resolving]
  - Drug interaction [Unknown]
